FAERS Safety Report 10252552 (Version 1)
Quarter: 2014Q2

REPORT INFORMATION
  Report Type: Spontaneous
  Country: US (occurrence: None)
  Receive Date: 20140620
  Receipt Date: 20140620
  Transmission Date: 20141212
  Serious: Yes (Life-Threatening, Disabling, Other)
  Sender: FDA-Public Use
  Company Number: None

PATIENT
  Age: 25 Year
  Sex: Female
  Weight: 150 kg

DRUGS (1)
  1. MIRENA [Suspect]

REACTIONS (4)
  - Chemical poisoning [None]
  - Thyroid disorder [None]
  - Thyroid neoplasm [None]
  - Chemical poisoning [None]
